FAERS Safety Report 13142107 (Version 2)
Quarter: 2017Q1

REPORT INFORMATION
  Report Type: Spontaneous
  Country: US (occurrence: US)
  Receive Date: 20170123
  Receipt Date: 20170228
  Transmission Date: 20170428
  Serious: Yes (Death)
  Sender: FDA-Public Use
  Company Number: US-TAIHO ONCOLOGY INC-EU-2016-00860

PATIENT
  Age: 47 Year
  Sex: Male

DRUGS (10)
  1. RESTORIL [Concomitant]
     Active Substance: TEMAZEPAM
     Dosage: NI
  2. AMLODIPINE [Concomitant]
     Active Substance: AMLODIPINE BESYLATE
     Dosage: NI
  3. LONSURF [Suspect]
     Active Substance: TIPIRACIL HYDROCHLORIDE\TRIFLURIDINE
     Indication: COLON CANCER
     Route: 048
     Dates: start: 20151230
  4. ATIVAN [Concomitant]
     Active Substance: LORAZEPAM
     Dosage: NI
  5. PROMETHAZINE [Concomitant]
     Active Substance: PROMETHAZINE\PROMETHAZINE HYDROCHLORIDE
     Dosage: NI
  6. DILAUDID [Concomitant]
     Active Substance: HYDROMORPHONE HYDROCHLORIDE
     Dosage: NI
  7. PROTONIX [Concomitant]
     Active Substance: PANTOPRAZOLE SODIUM
     Dosage: NI
  8. COLCRYS [Concomitant]
     Active Substance: COLCHICINE
     Dosage: NI
  9. TOPROL XL [Concomitant]
     Active Substance: METOPROLOL SUCCINATE
     Dosage: NI
  10. XARELTO [Concomitant]
     Active Substance: RIVAROXABAN
     Dosage: NI

REACTIONS (2)
  - Disease progression [Fatal]
  - Fatigue [Unknown]

NARRATIVE: CASE EVENT DATE: 20170111
